FAERS Safety Report 22145306 (Version 6)
Quarter: 2024Q2

REPORT INFORMATION
  Report Type: Spontaneous
  Country: JP (occurrence: JP)
  Receive Date: 20230328
  Receipt Date: 20240415
  Transmission Date: 20240716
  Serious: Yes (Hospitalization)
  Sender: FDA-Public Use
  Company Number: JP-ABBVIE-4706918

PATIENT
  Age: 62 Year
  Sex: Male
  Weight: 69 kg

DRUGS (7)
  1. RINVOQ [Suspect]
     Active Substance: UPADACITINIB
     Indication: Psoriatic arthropathy
     Dosage: FORM STRENGTH: 15MG
     Route: 048
     Dates: start: 20220609, end: 20230224
  2. BIPERIDEN HYDROCHLORIDE [Concomitant]
     Active Substance: BIPERIDEN HYDROCHLORIDE
     Indication: Schizophrenia
     Dosage: 4 MILLIGRAM
     Route: 048
     Dates: start: 20170118, end: 20221014
  3. HALOPERIDOL [Concomitant]
     Active Substance: HALOPERIDOL
     Indication: Schizophrenia
     Dosage: 9 MILLIGRAM
     Route: 048
     Dates: start: 20180516, end: 20221014
  4. LANSOPRAZOLE [Concomitant]
     Active Substance: LANSOPRAZOLE
     Indication: Prophylaxis against gastrointestinal ulcer
     Dosage: 15 MILLIGRAM
     Route: 048
     Dates: start: 20181012
  5. DIAZEPAM [Concomitant]
     Active Substance: DIAZEPAM
     Indication: Schizophrenia
     Dosage: 4 MILLIGRAM
     Route: 048
     Dates: start: 20180117, end: 20221014
  6. CELECOXIB [Concomitant]
     Active Substance: CELECOXIB
     Indication: Psoriatic arthropathy
     Dosage: 200 MILLIGRAM
     Route: 048
     Dates: start: 20190530
  7. RILMAZAFONE HYDROCHLORIDE [Concomitant]
     Active Substance: RILMAZAFONE HYDROCHLORIDE
     Indication: Insomnia
     Dosage: HYDRATE?2 MILLIGRAM
     Route: 048
     Dates: start: 20210218, end: 20221014

REACTIONS (2)
  - Hodgkin^s disease [Not Recovered/Not Resolved]
  - Pneumonia aspiration [Recovered/Resolved]

NARRATIVE: CASE EVENT DATE: 20221003
